FAERS Safety Report 19485314 (Version 1)
Quarter: 2021Q3

REPORT INFORMATION
  Report Type: Spontaneous
  Country: US (occurrence: US)
  Receive Date: 20210702
  Receipt Date: 20210702
  Transmission Date: 20211014
  Serious: Yes (Hospitalization)
  Sender: FDA-Public Use
  Company Number: US-JNJFOC-20210657171

PATIENT
  Age: 73 Year
  Sex: Male

DRUGS (4)
  1. BENADRYL [Suspect]
     Active Substance: DIPHENHYDRAMINE HYDROCHLORIDE
     Indication: PREMEDICATION
     Route: 065
  2. GOCOVRI [Suspect]
     Active Substance: AMANTADINE
     Indication: DYSKINESIA
     Dosage: 1X/DAY AT BEDTIME
     Route: 048
     Dates: start: 20210316
  3. IODINE. [Suspect]
     Active Substance: IODINE
     Indication: PRODUCT USED FOR UNKNOWN INDICATION
     Route: 065
  4. LEVODOPA [Concomitant]
     Active Substance: LEVODOPA
     Indication: PARKINSON^S DISEASE
     Route: 065

REACTIONS (9)
  - Off label use [Unknown]
  - Joint swelling [Recovering/Resolving]
  - Gait inability [Unknown]
  - Asthenia [Unknown]
  - Product use in unapproved indication [Unknown]
  - Contusion [Recovering/Resolving]
  - Fall [Recovering/Resolving]
  - Skin laceration [Recovering/Resolving]
  - Confusional state [Unknown]
